FAERS Safety Report 9071685 (Version 1)
Quarter: 2013Q1

REPORT INFORMATION
  Report Type: Spontaneous
  Country: US (occurrence: US)
  Receive Date: 20130206
  Receipt Date: 20130206
  Transmission Date: 20140127
  Serious: No
  Sender: FDA-Public Use
  Company Number: US-ALLERGAN-1213328US

PATIENT
  Sex: Male

DRUGS (5)
  1. RESTASIS? [Suspect]
     Indication: PRODUCT USED FOR UNKNOWN INDICATION
     Dosage: UNK
     Route: 047
     Dates: start: 2007
  2. LOSARTAN [Concomitant]
     Indication: HYPERTENSION
  3. AMLODOPINE [Concomitant]
     Indication: HYPERTENSION
  4. LIPITOR [Concomitant]
     Indication: HYPERCHOLESTEROLAEMIA
  5. PANTOPRAZOLE [Concomitant]
     Indication: GASTROOESOPHAGEAL REFLUX DISEASE

REACTIONS (3)
  - Eye disorder [Not Recovered/Not Resolved]
  - Retinopathy [Not Recovered/Not Resolved]
  - Vision blurred [Not Recovered/Not Resolved]
